FAERS Safety Report 23987766 (Version 1)
Quarter: 2024Q2

REPORT INFORMATION
  Report Type: Spontaneous
  Country: US (occurrence: US)
  Receive Date: 20240619
  Receipt Date: 20240619
  Transmission Date: 20240716
  Serious: No
  Sender: FDA-Public Use
  Company Number: US-Accord-356599

PATIENT
  Sex: Male

DRUGS (2)
  1. CAPECITABINE [Suspect]
     Active Substance: CAPECITABINE
     Indication: Pancreatic carcinoma
     Dosage: STRENGTH: 500MG, ?DOSE: 3 TABLETS MORNING AND 3 TABLETS EVENING, 14 DAYS ON AND 14 DAYS OFF
     Route: 048
  2. SANDOSTATIN [Concomitant]
     Active Substance: OCTREOTIDE ACETATE
     Indication: Diarrhoea

REACTIONS (3)
  - Illness [Unknown]
  - Off label use [Unknown]
  - Inappropriate schedule of product administration [Unknown]
